FAERS Safety Report 6445914-6 (Version None)
Quarter: 2009Q4

REPORT INFORMATION
  Report Type: 
  Country: None (occurrence: None)
  Receive Date: 20091119
  Receipt Date: 20081211
  Transmission Date: 20100525
  Serious: No
  Sender: FDA-Public Use
  Company Number: A0758333A

PATIENT
  Age: 35 Year
  Sex: Male
  Weight: 90.5 kg

DRUGS (2)
  1. WELLBUTRIN SR [Suspect]
     Indication: DEPRESSION
     Dosage: 150MG TWICE PER DAY
     Route: 048
     Dates: start: 20081107, end: 20081119
  2. ALBUTEROL [Concomitant]

REACTIONS (4)
  - IRRITABILITY [None]
  - MENTAL IMPAIRMENT [None]
  - SOMNOLENCE [None]
  - TOBACCO USER [None]
